FAERS Safety Report 8105323-0 (Version None)
Quarter: 2012Q1

REPORT INFORMATION
  Report Type: 
  Country: None (occurrence: None)
  Receive Date: 20120201
  Receipt Date: 20120123
  Transmission Date: 20120608
  Serious: Yes (Hospitalization)
  Sender: FDA-Public Use
  Company Number: PHHY2012CA006771

PATIENT
  Sex: Female

DRUGS (1)
  1. RASILEZ [Suspect]
     Dosage: UNK
     Dates: start: 20111201

REACTIONS (1)
  - CEREBROVASCULAR ACCIDENT [None]
